FAERS Safety Report 17683743 (Version 11)
Quarter: 2020Q2

REPORT INFORMATION
  Report Type: Report from Study
  Country: IN (occurrence: IN)
  Receive Date: 20200420
  Receipt Date: 20200622
  Transmission Date: 20200714
  Serious: Yes (Other)
  Sender: FDA-Public Use
  Company Number: NVSC2020IN056682

PATIENT
  Age: 62 Year
  Sex: Male
  Weight: 72 kg

DRUGS (5)
  1. INVOKANA [Concomitant]
     Active Substance: CANAGLIFLOZIN
     Indication: PRODUCT USED FOR UNKNOWN INDICATION
     Dosage: UNK UNK, BID
     Route: 048
  2. GLIMER [Concomitant]
     Indication: PRODUCT USED FOR UNKNOWN INDICATION
     Dosage: UNK UNK, BID
     Route: 048
  3. GALVUS MET [Suspect]
     Active Substance: METFORMIN HYDROCHLORIDE\VILDAGLIPTIN
     Indication: DIABETES MELLITUS
     Dosage: 1 DF, BID (1-0-1)
     Route: 048
     Dates: start: 201912
  4. LANTUS [Concomitant]
     Active Substance: INSULIN GLARGINE
     Indication: DIABETES MELLITUS
     Dosage: 10 U, QD (0-0-1) (STARTED SINCE 6 MONTHS)
     Route: 058
     Dates: start: 201909
  5. GALVUS MET [Suspect]
     Active Substance: METFORMIN HYDROCHLORIDE\VILDAGLIPTIN
     Dosage: 1 DF, BID (1-0-1)
     Route: 048
     Dates: start: 20191115

REACTIONS (22)
  - Pain in extremity [Unknown]
  - Glycosylated haemoglobin increased [Unknown]
  - Syncope [Unknown]
  - Weight decreased [Unknown]
  - Blood pressure decreased [Unknown]
  - Hypertension [Unknown]
  - Chest pain [Unknown]
  - Fatigue [Unknown]
  - Heart rate decreased [Unknown]
  - Hypoaesthesia [Unknown]
  - Haemoglobin decreased [Unknown]
  - Vomiting [Recovered/Resolved]
  - Hyperglycaemia [Unknown]
  - Neuropathy peripheral [Not Recovered/Not Resolved]
  - Glomerular filtration rate decreased [Unknown]
  - Blood pressure diastolic decreased [Unknown]
  - Gastric disorder [Unknown]
  - Body mass index increased [Unknown]
  - Diarrhoea [Recovered/Resolved]
  - Hypotension [Unknown]
  - Cough [Unknown]
  - Hyperhidrosis [Unknown]

NARRATIVE: CASE EVENT DATE: 20191221
